FAERS Safety Report 5826735-1 (Version None)
Quarter: 2008Q3

REPORT INFORMATION
  Report Type: 
  Country: None (occurrence: None)
  Receive Date: 20080728
  Receipt Date: 20080728
  Transmission Date: 20090109
  Serious: Yes (Hospitalization)
  Sender: FDA-Public Use
  Company Number: None

PATIENT
  Age: 42 Year
  Sex: Male

DRUGS (14)
  1. LISINOPRIL [Suspect]
     Indication: HYPERTENSION
     Dosage: 10MG DAILY PO
     Route: 048
  2. QUINIDINE HCL [Concomitant]
  3. BIDIL [Concomitant]
  4. ALLEGRA [Concomitant]
  5. ASPIRIN [Concomitant]
  6. DIGOXIN [Concomitant]
  7. POTASSIUM CHLORIDE [Concomitant]
  8. FUROSEMIDE [Concomitant]
  9. COREG [Concomitant]
  10. MAGNESIUM OXIDE [Concomitant]
  11. ALDACTONE [Concomitant]
  12. NEXIUM [Concomitant]
  13. ZOSYN [Concomitant]
  14. VANCOMYCIN HCL [Concomitant]

REACTIONS (3)
  - ANGIOEDEMA [None]
  - ENDOCARDITIS [None]
  - IMPLANT SITE INFECTION [None]
